FAERS Safety Report 14418867 (Version 2)
Quarter: 2018Q1

REPORT INFORMATION
  Report Type: Spontaneous
  Country: FR (occurrence: FR)
  Receive Date: 20180122
  Receipt Date: 20180207
  Transmission Date: 20180509
  Serious: Yes (Hospitalization, Other)
  Sender: FDA-Public Use
  Company Number: FR-MYLANLABS-2018M1004281

PATIENT
  Sex: Female

DRUGS (13)
  1. VANDA [Concomitant]
     Active Substance: CYANOCOBALAMIN\PYRIDOXAMINE HYDROCHLORIDE\THIAMINE HYDROCHLORIDE
     Indication: PRODUCT USED FOR UNKNOWN INDICATION
  2. TIENAM [Concomitant]
     Active Substance: CILASTATIN SODIUM\IMIPENEM
     Indication: ANTIBIOTIC THERAPY
  3. ACLOTINE [Concomitant]
     Active Substance: ANTITHROMBIN III HUMAN
     Indication: TOXICITY TO VARIOUS AGENTS
  4. ETOPOSIDE. [Suspect]
     Active Substance: ETOPOSIDE
     Indication: ACUTE LYMPHOCYTIC LEUKAEMIA
     Dosage: 167 MG, UNK
     Route: 042
     Dates: start: 20171130, end: 20171202
  5. BETADINE [Concomitant]
     Active Substance: POVIDONE-IODINE
     Indication: ANAL FISSURE
  6. DEXAMETHASONE. [Suspect]
     Active Substance: DEXAMETHASONE
     Indication: ACUTE LYMPHOCYTIC LEUKAEMIA
     Dosage: 22.2 MG, UNK
     Route: 048
     Dates: start: 20171128, end: 20171202
  7. PEGASPARGASE [Suspect]
     Active Substance: PEGASPARGASE
     Indication: ACUTE LYMPHOCYTIC LEUKAEMIA
     Dosage: 2800 IU,
     Route: 042
     Dates: start: 20171203, end: 20171203
  8. MITOXANTRONE [Suspect]
     Active Substance: MITOXANTRONE HYDROCHLORIDE
     Indication: ACUTE LYMPHOCYTIC LEUKAEMIA
     Dosage: 8.9 MG, UNK
     Route: 042
     Dates: start: 20171130, end: 20171201
  9. AMBISOME [Concomitant]
     Active Substance: AMPHOTERICIN B
     Indication: ANTIBIOTIC THERAPY
  10. DEXAMETHASONE. [Suspect]
     Active Substance: DEXAMETHASONE
     Dosage: 11.2 MG, UNK
     Route: 048
     Dates: start: 20171203, end: 20171203
  11. CYTARABINE. [Suspect]
     Active Substance: CYTARABINE
     Indication: ACUTE LYMPHOCYTIC LEUKAEMIA
     Dosage: 4440 MG, QD
     Route: 042
     Dates: start: 20171128, end: 20171129
  12. AMIKLIN                            /00391001/ [Concomitant]
     Active Substance: AMIKACIN SULFATE
     Indication: ANTIBIOTIC THERAPY
  13. LASILIX                            /00032601/ [Concomitant]
     Active Substance: FUROSEMIDE
     Indication: PRODUCT USED FOR UNKNOWN INDICATION

REACTIONS (2)
  - Bone marrow failure [Not Recovered/Not Resolved]
  - Febrile bone marrow aplasia [Recovered/Resolved]

NARRATIVE: CASE EVENT DATE: 20171207
